FAERS Safety Report 10939985 (Version 1)
Quarter: 2015Q1

REPORT INFORMATION
  Report Type: Spontaneous
  Country: US (occurrence: None)
  Receive Date: 20150212
  Receipt Date: 20150212
  Transmission Date: 20150721
  Serious: Yes (Other)
  Sender: FDA-Public Use
  Company Number: 2014-00293

PATIENT
  Age: 18 Year

DRUGS (1)
  1. MINOCYCLINE HCL (WATSON LABORATORIES) [Suspect]
     Active Substance: MINOCYCLINE HYDROCHLORIDE
     Indication: PRODUCT USED FOR UNKNOWN INDICATION
     Dates: start: 20130825, end: 20131031

REACTIONS (7)
  - Stomatitis [None]
  - Heart rate increased [None]
  - Dizziness [None]
  - Abdominal pain upper [None]
  - Vertigo [None]
  - Thyroid function test abnormal [None]
  - Benign intracranial hypertension [None]
